FAERS Safety Report 6542842-2 (Version None)
Quarter: 2010Q1

REPORT INFORMATION
  Report Type: 
  Country: None (occurrence: None)
  Receive Date: 20100120
  Receipt Date: 20100111
  Transmission Date: 20100710
  Serious: Yes (Hospitalization)
  Sender: FDA-Public Use
  Company Number: DE-ABBOTT-10P-062-0618593-00

PATIENT
  Sex: Female

DRUGS (5)
  1. HUMIRA [Suspect]
     Indication: PSORIATIC ARTHROPATHY
     Route: 058
     Dates: start: 20090807
  2. DECORTIN H [Concomitant]
     Indication: DRUG USE FOR UNKNOWN INDICATION
  3. TILIDIN [Concomitant]
     Indication: DRUG USE FOR UNKNOWN INDICATION
  4. METOHEXAL [Concomitant]
     Indication: DRUG USE FOR UNKNOWN INDICATION
  5. ASS [Concomitant]
     Indication: DRUG USE FOR UNKNOWN INDICATION

REACTIONS (1)
  - VENTRICULAR FIBRILLATION [None]
